FAERS Safety Report 4461631-6 (Version None)
Quarter: 2004Q3

REPORT INFORMATION
  Report Type: 
  Country: None (occurrence: None)
  Receive Date: 20040921
  Receipt Date: 20040629
  Transmission Date: 20050211
  Serious: Yes (Hospitalization)
  Sender: FDA-Public Use
  Company Number: 200410156BBE

PATIENT
  Age: 57 Year
  Sex: Male

DRUGS (14)
  1. HELIXATE FS [Suspect]
     Indication: FACTOR VIII DEFICIENCY
     Dosage: INTRAVENOUS
     Route: 042
     Dates: start: 20040414, end: 20040510
  2. HELIXATE FS [Suspect]
  3. HELIXATE FS [Suspect]
  4. SUFENTA [Concomitant]
  5. DIPRIVAN [Concomitant]
  6. TRACRIUM [Concomitant]
  7. EPHEDRINE SUL CAP [Concomitant]
  8. KETAMINE HCL [Concomitant]
  9. ACUPAN [Concomitant]
  10. SOPHIDONE [Concomitant]
  11. MORPHINE SULFATE [Concomitant]
  12. DOLIPRANE [Concomitant]
  13. RIVOTRIL [Concomitant]
  14. RED BLOOD CELL CONCENTRATES [Concomitant]

REACTIONS (7)
  - ACUTE RESPIRATORY DISTRESS SYNDROME [None]
  - HYPOXIA [None]
  - INTERSTITIAL LUNG DISEASE [None]
  - LEUKOCYTOSIS [None]
  - MONOCYTOSIS [None]
  - PNEUMONIA [None]
  - PYREXIA [None]
